FAERS Safety Report 14957488 (Version 1)
Quarter: 2018Q2

REPORT INFORMATION
  Report Type: Spontaneous
  Country: EG (occurrence: EG)
  Receive Date: 20180531
  Receipt Date: 20180531
  Transmission Date: 20180711
  Serious: Yes (Hospitalization, Other)
  Sender: FDA-Public Use
  Company Number: EG-NOVOPROD-602840

PATIENT
  Age: 70 Year
  Sex: Female

DRUGS (2)
  1. MIXTARD 30 HM PENFILL [Suspect]
     Active Substance: INSULIN HUMAN
     Indication: DIABETES MELLITUS
     Dosage: FROM 2.5 YEARS
     Route: 065
  2. LORAZ                              /00273201/ [Concomitant]
     Indication: HYPERTENSION
     Dosage: 1 TAB, QD (BEFORE BREAKFAST)
     Route: 048
     Dates: start: 20171224

REACTIONS (1)
  - Eye operation [Not Recovered/Not Resolved]

NARRATIVE: CASE EVENT DATE: 20180217
